FAERS Safety Report 5759100-6 (Version None)
Quarter: 2008Q2

REPORT INFORMATION
  Report Type: 
  Country: None (occurrence: None)
  Receive Date: 20080604
  Receipt Date: 20080526
  Transmission Date: 20081010
  Serious: Yes (Hospitalization, Other)
  Sender: FDA-Public Use
  Company Number: FR-ELI_LILLY_AND_COMPANY-FR200805005066

PATIENT
  Sex: Female
  Weight: 66 kg

DRUGS (8)
  1. PROZAC [Suspect]
     Dosage: 1 D/F, DAILY (1/D)
     Route: 048
     Dates: end: 20080401
  2. PLAVIX [Concomitant]
     Dosage: 75 MG, DAILY (1/D)
     Route: 048
     Dates: end: 20080401
  3. INNOHEP [Concomitant]
     Dosage: 4500 IU, DAILY (1/D)
     Route: 058
     Dates: start: 20080323, end: 20080401
  4. DUPHALAC [Concomitant]
     Dosage: UNK, UNK
     Route: 048
     Dates: end: 20080401
  5. MICARDIS [Concomitant]
     Dosage: 1 D/F, 2/D
     Route: 048
     Dates: end: 20080401
  6. VASTAREL [Concomitant]
     Dosage: 1 D/F, 2/D
     Route: 048
     Dates: end: 20080401
  7. PRAXILENE [Concomitant]
     Dosage: 1 D/F, 2/D
     Route: 048
     Dates: end: 20080401
  8. NEURONTIN [Concomitant]
     Dosage: 300 MG, 2/D

REACTIONS (4)
  - ANAEMIA [None]
  - DEHYDRATION [None]
  - HAEMATOMA [None]
  - RENAL FAILURE [None]
